FAERS Safety Report 4790249-0 (Version None)
Quarter: 2005Q4

REPORT INFORMATION
  Report Type: 
  Country: None (occurrence: None)
  Receive Date: 20051006
  Receipt Date: 20050928
  Transmission Date: 20060501
  Serious: Yes (Other)
  Sender: FDA-Public Use
  Company Number: PHBS2005NL14290

PATIENT
  Age: 45 Year
  Sex: Female

DRUGS (1)
  1. VOLTAREN [Suspect]
     Route: 048

REACTIONS (2)
  - DEAFNESS [None]
  - DIZZINESS [None]
